FAERS Safety Report 7767071-6 (Version None)
Quarter: 2011Q3

REPORT INFORMATION
  Report Type: 
  Country: None (occurrence: None)
  Receive Date: 20110922
  Receipt Date: 20101018
  Transmission Date: 20111222
  Serious: No
  Sender: FDA-Public Use
  Company Number: US-ASTRAZENECA-2010SE49130

PATIENT
  Sex: Female
  Weight: 72.6 kg

DRUGS (1)
  1. SEROQUEL [Suspect]
     Indication: BIPOLAR DISORDER
     Dosage: 150MG. IN THE AM AND 300MG. IN THE PM
     Route: 048

REACTIONS (4)
  - HYPERSOMNIA [None]
  - DRUG DOSE OMISSION [None]
  - AMNESIA [None]
  - INSOMNIA [None]
